FAERS Safety Report 18068999 (Version 2)
Quarter: 2021Q1

REPORT INFORMATION
  Report Type: Spontaneous
  Country: DE (occurrence: DE)
  Receive Date: 20200725
  Receipt Date: 20210111
  Transmission Date: 20210419
  Serious: Yes (Hospitalization)
  Sender: FDA-Public Use
  Company Number: NVSC2020DE203061

PATIENT
  Age: 46 Year
  Sex: Female

DRUGS (6)
  1. HYDROCORTISONE. [Suspect]
     Active Substance: HYDROCORTISONE
     Dosage: P 20, HC 15, MILLIGRAM, 3X/DAY:TID
     Route: 048
     Dates: start: 20160206
  2. SELENIUM [Concomitant]
     Active Substance: SELENIUM
     Indication: ADDISON^S DISEASE
     Dosage: 200 ?G, 1X/DAY:QD
     Route: 048
     Dates: start: 2012
  3. HYDROCORTISONE. [Suspect]
     Active Substance: HYDROCORTISONE
     Indication: ADRENAL INSUFFICIENCY
     Dosage: 20 MG, 1X/DAY:QD
     Route: 048
     Dates: start: 2015, end: 20160212
  4. CHOLECALCIFEROL [Concomitant]
     Active Substance: CHOLECALCIFEROL
     Indication: VITAMIN D DEFICIENCY
     Route: 065
  5. FLUDROCORTISONE [Concomitant]
     Active Substance: FLUDROCORTISONE
     Indication: ADDISON^S DISEASE
     Dosage: 0.1 MG, 1X/DAY:QD
     Route: 048
     Dates: start: 2011
  6. VITAMIN D [Concomitant]
     Active Substance: VITAMIN D NOS
     Indication: VITAMIN D DEFICIENCY
     Dosage: 1000 IU, 1X/DAY:QD
     Route: 048
     Dates: start: 2012

REACTIONS (1)
  - Adrenocortical insufficiency acute [Recovered/Resolved]

NARRATIVE: CASE EVENT DATE: 20151017
